FAERS Safety Report 8837560 (Version 1)
Quarter: 2012Q4

REPORT INFORMATION
  Report Type: 
  Country: SE (occurrence: SE)
  Receive Date: 20121012
  Receipt Date: 20121012
  Transmission Date: 20130627
  Serious: Yes (Life-Threatening, Other)
  Sender: FDA-Public Use
  Company Number: SE-PFIZER INC-2012249170

PATIENT
  Age: 11 Year
  Sex: Male

DRUGS (1)
  1. ADRENALINE [Suspect]
     Indication: BRONCHOSPASM
     Dosage: UNK
     Route: 058

REACTIONS (3)
  - Bronchospasm [Recovered/Resolved]
  - Hypotonia [Recovered/Resolved]
  - Anoxia [Recovered/Resolved]
